FAERS Safety Report 13269486 (Version 3)
Quarter: 2017Q1

REPORT INFORMATION
  Report Type: Report from Study
  Country: None (occurrence: AT)
  Receive Date: 20170224
  Receipt Date: 20170323
  Transmission Date: 20170428
  Serious: Yes (Hospitalization)
  Sender: FDA-Public Use
  Company Number: AT-ABBVIE-16P-009-1761857-00

PATIENT
  Age: 68 Year
  Sex: Male
  Weight: 81 kg

DRUGS (47)
  1. RITUXIMAB [Suspect]
     Active Substance: RITUXIMAB
     Dosage: MOST RECENT DOSE PRIOR TO INFLUENZA INFECTION (740MG) WAS 20DEC16
     Route: 042
  2. CYCLOPHOSPHAMIDE. [Suspect]
     Active Substance: CYCLOPHOSPHAMIDE
     Dosage: MOST RECENT DOSE PRIOR TO INFLUENZA INFECTION (1500 MG) WAS 20DEC16
     Route: 042
  3. DOXORUBICIN [Suspect]
     Active Substance: DOXORUBICIN
     Dosage: MOST RECENT DOSE PRIOR TO COMMON COLD, THIRD EPISODE FN (50MG) 28NOV16
     Route: 042
  4. PREDNISONE. [Suspect]
     Active Substance: PREDNISONE
     Dosage: MOST RECENT DOSE PRIOR TO SECOND EPISODE OF SYNCOPE AND FN WAS 11NOV16
     Route: 048
  5. THROMBO ASS (ASPRIN) [Concomitant]
     Indication: PROPHYLAXIS
  6. LYRICA [Concomitant]
     Active Substance: PREGABALIN
     Indication: ANXIETY DISORDER
  7. ALLOPURINOL. [Concomitant]
     Active Substance: ALLOPURINOL
     Indication: PROPHYLAXIS
     Dates: start: 20160902
  8. RITUXIMAB [Suspect]
     Active Substance: RITUXIMAB
     Indication: B-CELL LYMPHOMA
     Dosage: MOST RECENT DOSE PRIOR TO FIRST EPISODE OF SYNCOPE AND FN, INFECTION (740MG) WAS 14OCT16
     Route: 042
     Dates: start: 20160902
  9. CYCLOPHOSPHAMIDE. [Suspect]
     Active Substance: CYCLOPHOSPHAMIDE
     Dosage: MOST RECENT DOSE PRIOR TO SECOND EPISODE OF SYNCOPE AND FN (1500 MG) WAS07NOV16
     Route: 042
  10. VINCRISTINE [Suspect]
     Active Substance: VINCRISTINE
     Indication: B-CELL LYMPHOMA
     Dosage: MOST RECENT DOSE PRIOR TO FIRST EPISODE OF SYNCOPE, FN, INFECTION (2MG) WAS 14OCT16
     Route: 042
     Dates: start: 20160902
  11. VINCRISTINE [Suspect]
     Active Substance: VINCRISTINE
     Dosage: MOST RECENT DOSE PRIOR TO SECOND EPISODE OF SYNCOPE, FN (1MG) WAS 07NOV16
     Route: 042
  12. PANTOLOC [Concomitant]
     Active Substance: PANTOPRAZOLE SODIUM
     Indication: PRODUCT USED FOR UNKNOWN INDICATION
  13. TAVANIC [Concomitant]
     Active Substance: LEVOFLOXACIN
     Indication: INFECTION PROPHYLAXIS
     Dates: start: 20160906
  14. OPTIFIBRE(DIETARY FIBER) [Concomitant]
     Indication: CONSTIPATION
     Dates: start: 201609
  15. CYCLOPHOSPHAMIDE. [Suspect]
     Active Substance: CYCLOPHOSPHAMIDE
     Indication: B-CELL LYMPHOMA
     Dosage: MOST RECENT DOSE PRIOR TO FIRST EPISODE OF SYNCOPE AND FN, INFECTION (1500 MG) WAS 14OCT16
     Route: 042
     Dates: start: 20160902
  16. DOXORUBICIN [Suspect]
     Active Substance: DOXORUBICIN
     Indication: B-CELL LYMPHOMA
     Dosage: MOST RECENT DOSE PRIOR TO FIRST EPISODE OF SYNCOPE, FN, INFECTION(100MG) WAS 14OCT16
     Route: 042
     Dates: start: 20160902
  17. DOXORUBICIN [Suspect]
     Active Substance: DOXORUBICIN
     Dosage: MOST RECENT DOSE PRIOR TO SECOND EPISODE OF SYNCOPE, FN (100MG) WAS 07NOV16
     Route: 042
  18. PREDNISONE. [Suspect]
     Active Substance: PREDNISONE
     Dosage: MOST RECENT DOSE PRIOR TO FIRST EPISODE OF SYNCOPE, FN, INFECTION WAS 18OCT16
     Route: 048
  19. KCL ZYMA [Concomitant]
     Indication: PRODUCT USED FOR UNKNOWN INDICATION
     Dates: start: 201609
  20. PREDNISONE. [Suspect]
     Active Substance: PREDNISONE
     Dosage: MOST RECENT DOSE PRIOR TO COMMON COLD AND THIRD FN WAS 02DEC16
     Route: 048
  21. OLEOVIT D3 [Concomitant]
     Active Substance: CHOLECALCIFEROL
     Indication: PRODUCT USED FOR UNKNOWN INDICATION
     Dates: start: 20160902
  22. RATIOGRASTIM [Concomitant]
     Active Substance: FILGRASTIM
     Indication: PRODUCT USED FOR UNKNOWN INDICATION
     Dates: start: 20161018, end: 20161020
  23. ACEMIN [Concomitant]
     Active Substance: LISINOPRIL
     Indication: HYPERTENSION
  24. RITUXIMAB [Suspect]
     Active Substance: RITUXIMAB
     Dosage: MOST RECENT DOSE PRIOR TO SECOND EPISODE OF SYNCOPE, FN (740MG) WAS 07NOV16
     Route: 042
  25. VINCRISTINE [Suspect]
     Active Substance: VINCRISTINE
     Dosage: MOST RECENT DOSE PRIOR TO  INFLUENZA INFECTION (1MG) WAS 20DEC16
     Route: 042
  26. METOHEXAL [Concomitant]
     Active Substance: METOPROLOL SUCCINATE
     Indication: CARDIAC FAILURE
  27. EMEND [Concomitant]
     Active Substance: APREPITANT
     Indication: PROPHYLAXIS OF NAUSEA AND VOMITING
     Dates: start: 20161014
  28. NEUDOLPASSE [Concomitant]
     Indication: PAIN
     Dates: start: 20160902, end: 20160902
  29. LOVENOX [Concomitant]
     Active Substance: ENOXAPARIN SODIUM
     Indication: THROMBOSIS PROPHYLAXIS
     Dates: start: 20160902, end: 20160905
  30. BURONIL [Concomitant]
     Active Substance: MELPERONE HYDROCHLORIDE
     Indication: PRODUCT USED FOR UNKNOWN INDICATION
     Dates: start: 20161014, end: 20161014
  31. VENETOCLAX [Suspect]
     Active Substance: VENETOCLAX
     Dosage: MOST RECENT DOSE PRIOR TO SECOND FEBRILE NEUTROPENIA AND INFECTION WAS 23OCT16
     Route: 048
  32. VENETOCLAX [Suspect]
     Active Substance: VENETOCLAX
     Dosage: MOST RECENT DOSE PRIOR TO COMMON COLD, THIRD FN (400MG) WAS 7DEC16
     Route: 048
  33. RITUXIMAB [Suspect]
     Active Substance: RITUXIMAB
     Dosage: MOST RECENT DOSE PRIOR TO COMMON COLD, THIRD EPISODE OF FN (740MG) WAS 28NOV16
     Route: 042
  34. SIMVASTATIN. [Concomitant]
     Active Substance: SIMVASTATIN
     Indication: HYPERLIPIDAEMIA
  35. DOXORUBICIN [Suspect]
     Active Substance: DOXORUBICIN
     Dosage: MOST RECENT DOSE PRIOR TO INFLUENZA INFECTION (100MG) 20DEC16
     Route: 042
  36. VINCRISTINE [Suspect]
     Active Substance: VINCRISTINE
     Dosage: MOST RECENT DOSE PRIOR TO COMMON COLD AND THIRD EPISODE FN (1MG) WAS 28NOV16
     Route: 042
  37. PREDNISONE. [Suspect]
     Active Substance: PREDNISONE
     Indication: B-CELL LYMPHOMA
     Dosage: 100MG DAILY ON DAYS 1-5 OF EACH CYCLE
     Route: 048
     Dates: start: 20160902
  38. AMLODIPIN [Concomitant]
     Active Substance: AMLODIPINE BESYLATE
     Indication: HYPERTENSION
  39. ELO-MEL [Concomitant]
     Active Substance: CALCIUM CHLORIDE\MAGNESIUM CHLORIDE\POTASSIUM CHLORIDE\SODIUM ACETATE\SODIUM CHLORIDE
     Indication: PRODUCT USED FOR UNKNOWN INDICATION
     Dates: start: 20160902, end: 20160906
  40. LOVENOX [Concomitant]
     Active Substance: ENOXAPARIN SODIUM
     Dates: start: 20161014, end: 20161014
  41. VENETOCLAX [Suspect]
     Active Substance: VENETOCLAX
     Indication: B-CELL LYMPHOMA
     Dosage: MOST RECENT DOSE PRIOR TO FIRST EPISODE OF SYNCOPE WAS 20OCT16
     Route: 048
     Dates: start: 20160905
  42. VENETOCLAX [Suspect]
     Active Substance: VENETOCLAX
     Dosage: MOST RECENT DOSE PRIOR TO SECOND EPISODE OF SYNCOPE WAS 16NOV16
     Route: 048
  43. CYCLOPHOSPHAMIDE. [Suspect]
     Active Substance: CYCLOPHOSPHAMIDE
     Dosage: MOST RECENT DOSE PRIOR TO COMMON COLD, THIRD EPISODE OF FN (1500 MG) WAS 28NOV16
     Route: 042
  44. PREDNISONE. [Suspect]
     Active Substance: PREDNISONE
     Dosage: MOST RECENT DOSE 24 DEC 16
     Route: 048
  45. CITALOPRAM [Concomitant]
     Active Substance: CITALOPRAM HYDROBROMIDE
     Indication: DEPRESSION
  46. ZOFRAN [Concomitant]
     Active Substance: ONDANSETRON HYDROCHLORIDE
     Indication: PROPHYLAXIS OF NAUSEA AND VOMITING
     Dates: start: 20160903
  47. LOVENOX [Concomitant]
     Active Substance: ENOXAPARIN SODIUM
     Dates: start: 20160923, end: 20160924

REACTIONS (5)
  - Syncope [Recovered/Resolved]
  - Febrile neutropenia [Recovered/Resolved]
  - Nasopharyngitis [Not Recovered/Not Resolved]
  - Infection [Recovered/Resolved]
  - Influenza [Not Recovered/Not Resolved]

NARRATIVE: CASE EVENT DATE: 20161020
